FAERS Safety Report 8789981 (Version 1)
Quarter: 2012Q4

REPORT INFORMATION
  Report Type: 
  Country: US (occurrence: US)
  Receive Date: 20120917
  Receipt Date: 20120917
  Transmission Date: 20130627
  Serious: Yes (Other)
  Sender: FDA-Public Use
  Company Number: US-SANOFI-AVENTIS-2012SA067258

PATIENT
  Age: 28 Year
  Sex: Male
  Weight: 100 kg

DRUGS (1)
  1. LANTUS [Suspect]
     Indication: TYPE I DIABETES MELLITUS
     Route: 058
     Dates: start: 2000

REACTIONS (1)
  - Weight decreased [Unknown]
